FAERS Safety Report 7889209-2 (Version None)
Quarter: 2011Q4

REPORT INFORMATION
  Report Type: 
  Country: None (occurrence: None)
  Receive Date: 20111103
  Receipt Date: 20111024
  Transmission Date: 20120403
  Serious: Yes (Other)
  Sender: FDA-Public Use
  Company Number: US-CELGENEUS-163-21880-11081342

PATIENT
  Sex: Female
  Weight: 66.738 kg

DRUGS (11)
  1. REVLIMID [Suspect]
     Dosage: 20 MILLIGRAM
     Route: 048
     Dates: start: 20110701
  2. AZILECT [Concomitant]
     Route: 065
  3. MEDROL [Concomitant]
     Route: 065
  4. SINEMET [Concomitant]
     Route: 065
  5. REVLIMID [Suspect]
     Indication: MULTIPLE MYELOMA
     Dosage: 10 MILLIGRAM
     Route: 048
     Dates: start: 20101229
  6. CYLEXA [Concomitant]
     Route: 065
  7. REVLIMID [Suspect]
     Dosage: 50 MILLIGRAM
     Route: 048
  8. ATENOLOL [Concomitant]
     Route: 065
  9. CALCIUM [Concomitant]
     Route: 065
  10. ASPIRIN [Concomitant]
     Route: 065
  11. BENICAR HCT [Concomitant]
     Route: 065

REACTIONS (2)
  - MULTIPLE MYELOMA [None]
  - BREAST CANCER [None]
